FAERS Safety Report 6533371-0 (Version None)
Quarter: 2010Q1

REPORT INFORMATION
  Report Type: 
  Country: None (occurrence: None)
  Receive Date: 20100111
  Receipt Date: 20100108
  Transmission Date: 20100710
  Serious: Yes (Hospitalization)
  Sender: FDA-Public Use
  Company Number: A0837929A

PATIENT
  Age: 62 Year
  Sex: Female
  Weight: 100.9 kg

DRUGS (18)
  1. ALLI [Suspect]
     Indication: DRUG USE FOR UNKNOWN INDICATION
     Route: 048
     Dates: start: 20091101, end: 20091125
  2. ACTONEL [Concomitant]
     Indication: OSTEOPOROSIS
     Dosage: 1TAB MONTHLY
     Route: 048
  3. CALCIUM CITRATE [Concomitant]
     Dosage: 630MG SIX TIMES PER DAY
  4. VITAMIN D [Concomitant]
  5. DDAVP [Concomitant]
     Indication: DIABETES INSIPIDUS
     Dosage: .1MG AT NIGHT
     Route: 045
  6. IBUPROFEN [Concomitant]
     Indication: FIBROMYALGIA
     Dosage: 600MG AS REQUIRED
  7. METOPROLOL [Concomitant]
     Dosage: 50MG TWICE PER DAY
  8. LORAZEPAM [Concomitant]
     Dosage: 1MG TWICE PER DAY
  9. LYRICA [Concomitant]
     Indication: FIBROMYALGIA
     Dosage: 7MG TWICE PER DAY
  10. NORCO [Concomitant]
     Indication: PAIN
     Dosage: 325MG AS REQUIRED
  11. PLAVIX [Concomitant]
     Indication: ANTICOAGULANT THERAPY
     Dosage: 75MG PER DAY
  12. HYDROCORTISONE [Concomitant]
     Indication: ADRENAL INSUFFICIENCY
     Dosage: 10MG TWICE PER DAY
  13. PROTONIX [Concomitant]
     Dosage: 40MG PER DAY
  14. EDECRIN [Concomitant]
     Dosage: 25MG PER DAY
  15. SYNTHROID [Concomitant]
     Indication: THYROID DISORDER
     Dosage: 50MCG PER DAY
  16. VITAMIN D [Concomitant]
     Indication: VITAMIN D DEFICIENCY
     Dosage: 50000IU WEEKLY
  17. ZOLOFT [Concomitant]
     Indication: DEPRESSION
     Dosage: 100MG PER DAY
  18. MAXAIR [Concomitant]
     Dosage: 2PUFF AS REQUIRED

REACTIONS (5)
  - ABDOMINAL PAIN [None]
  - ASTHENIA [None]
  - DIARRHOEA [None]
  - DYSSTASIA [None]
  - MALAISE [None]
